FAERS Safety Report 16243657 (Version 1)
Quarter: 2019Q2

REPORT INFORMATION
  Report Type: Spontaneous
  Country: US (occurrence: US)
  Receive Date: 20190425
  Receipt Date: 20190425
  Transmission Date: 20190711
  Serious: Yes (Other)
  Sender: FDA-Public Use
  Company Number: None

PATIENT
  Age: 71 Year
  Sex: Female
  Weight: 51.75 kg

DRUGS (9)
  1. ROUVASTATIN [Concomitant]
     Active Substance: ROSUVASTATIN
  2. ZOFRAN [Concomitant]
     Active Substance: ONDANSETRON HYDROCHLORIDE
  3. BABAY ASPIRIN [Concomitant]
  4. PROBIOTIC [Concomitant]
     Active Substance: PROBIOTICS NOS
  5. COLACE [Concomitant]
     Active Substance: DOCUSATE SODIUM
  6. MORPHINE [Suspect]
     Active Substance: MORPHINE
     Indication: PAIN
     Dates: start: 20190424
  7. HYDROCODONE [Concomitant]
     Active Substance: HYDROCODONE
  8. MVI WITH MINERALS [Concomitant]
  9. CARVEDIROL [Concomitant]

REACTIONS (2)
  - Hallucination [None]
  - Abnormal behaviour [None]

NARRATIVE: CASE EVENT DATE: 20190425
